FAERS Safety Report 23988272 (Version 1)
Quarter: 2024Q2

REPORT INFORMATION
  Report Type: Report from Study
  Country: DE (occurrence: DE)
  Receive Date: 20240619
  Receipt Date: 20240619
  Transmission Date: 20240715
  Serious: Yes (Other)
  Sender: FDA-Public Use
  Company Number: DE-ABBVIE-5803731

PATIENT
  Sex: Male

DRUGS (1)
  1. SKYRIZI [Suspect]
     Active Substance: RISANKIZUMAB-RZAA
     Indication: Progressive diaphyseal dysplasia
     Dosage: UNKNOWN
     Route: 058

REACTIONS (3)
  - Lymphoma [Unknown]
  - Drug ineffective [Unknown]
  - Ulcer [Not Recovered/Not Resolved]
